FAERS Safety Report 6197509-X (Version None)
Quarter: 2009Q2

REPORT INFORMATION
  Report Type: 
  Country: None (occurrence: None)
  Receive Date: 20090521
  Receipt Date: 20090513
  Transmission Date: 20091009
  Serious: Yes (Hospitalization)
  Sender: FDA-Public Use
  Company Number: FR-AVENTIS-200912610EU

PATIENT
  Age: 76 Year
  Sex: Female

DRUGS (1)
  1. TERTENSIF [Suspect]
     Indication: HYPERTENSION
     Route: 048
     Dates: start: 20080301, end: 20090325

REACTIONS (2)
  - ANGINA PECTORIS [None]
  - HYPOKALAEMIA [None]
